FAERS Safety Report 11374224 (Version 1)
Quarter: 2015Q3

REPORT INFORMATION
  Report Type: Spontaneous
  Country: CN (occurrence: CN)
  Receive Date: 20150812
  Receipt Date: 20150812
  Transmission Date: 20151125
  Serious: Yes (Other)
  Sender: FDA-Public Use
  Company Number: CN-GILEAD-2015-0167268

PATIENT
  Age: 62 Year
  Sex: Female

DRUGS (2)
  1. LAMIVUDINE. [Suspect]
     Active Substance: LAMIVUDINE
     Indication: CHRONIC HEPATITIS B
     Route: 065
  2. ADEFOVIR DIPIVOXIL. [Suspect]
     Active Substance: ADEFOVIR DIPIVOXIL
     Indication: HEPATITIS B
     Dosage: UNK
     Route: 065

REACTIONS (4)
  - Hypophosphataemia [Recovered/Resolved]
  - Osteoporosis [Recovered/Resolved]
  - Fanconi syndrome acquired [Recovered/Resolved]
  - Glomerular filtration rate abnormal [Recovering/Resolving]
